FAERS Safety Report 6669617-8 (Version None)
Quarter: 2010Q2

REPORT INFORMATION
  Report Type: 
  Country: None (occurrence: None)
  Receive Date: 20100406
  Receipt Date: 20100325
  Transmission Date: 20101027
  Serious: Yes (Other)
  Sender: FDA-Public Use
  Company Number: US-BAUSCH-2010BL001670

PATIENT
  Age: 61 Year
  Sex: Male

DRUGS (7)
  1. CIPROFLOXACIN HCL [Suspect]
  2. VENLAFAXINE [Suspect]
  3. VENLAFAXINE [Suspect]
  4. METHADONE HCL [Suspect]
  5. HYDROMORPHONE HCL [Concomitant]
  6. OXYCODONE [Concomitant]
  7. METOCLOPRAMIDE [Concomitant]

REACTIONS (2)
  - DRUG INTERACTION [None]
  - SEROTONIN SYNDROME [None]
